FAERS Safety Report 5989371-2 (Version None)
Quarter: 2008Q4

REPORT INFORMATION
  Report Type: 
  Country: None (occurrence: None)
  Receive Date: 20081205
  Receipt Date: 20081121
  Transmission Date: 20090506
  Serious: Yes (Other)
  Sender: FDA-Public Use
  Company Number: 2008S1021621

PATIENT
  Sex: Male

DRUGS (2)
  1. ALPRAZOLAM [Suspect]
     Dosage: 2 MG;4 TIMES A DAY; 2 MG; 3 TIMES A DAY
     Dates: start: 19980101, end: 20050101
  2. ALPRAZOLAM [Suspect]
     Dosage: 2 MG;4 TIMES A DAY; 2 MG; 3 TIMES A DAY
     Dates: start: 20050101, end: 20080916

REACTIONS (5)
  - ALOPECIA [None]
  - DRUG DEPENDENCE [None]
  - DRUG WITHDRAWAL SYNDROME [None]
  - IRRITABILITY [None]
  - PARAESTHESIA [None]
